FAERS Safety Report 6370717-0 (Version None)
Quarter: 2009Q3

REPORT INFORMATION
  Report Type: 
  Country: None (occurrence: None)
  Receive Date: 20090923
  Receipt Date: 20070522
  Transmission Date: 20100115
  Serious: Yes (Other)
  Sender: FDA-Public Use
  Company Number: US-ASTRAZENECA-2006UW25956

PATIENT
  Age: 13109 Day
  Sex: Female
  Weight: 77.1 kg

DRUGS (19)
  1. SEROQUEL [Suspect]
     Indication: DEPRESSION
     Route: 048
     Dates: start: 20030617, end: 20050323
  2. SEROQUEL [Suspect]
     Indication: STRESS
     Route: 048
     Dates: start: 20030617, end: 20050323
  3. SEROQUEL [Suspect]
     Indication: INSOMNIA
     Route: 048
     Dates: start: 20030617, end: 20050323
  4. SEROQUEL [Suspect]
     Dosage: 20 - 100 MG AS REQUIRED
     Route: 048
     Dates: start: 20030617
  5. SEROQUEL [Suspect]
     Dosage: 20 - 100 MG AS REQUIRED
     Route: 048
     Dates: start: 20030617
  6. SEROQUEL [Suspect]
     Dosage: 20 - 100 MG AS REQUIRED
     Route: 048
     Dates: start: 20030617
  7. PROZAC [Concomitant]
     Dosage: 20 - 40 MG DAILY
     Route: 048
     Dates: start: 20020820
  8. PROZAC [Concomitant]
  9. NORVASC [Concomitant]
     Route: 048
     Dates: start: 20010714
  10. MONOPRIL [Concomitant]
     Dosage: 20 - 40 MG DAILY
     Route: 048
     Dates: start: 20010714
  11. ZYPREXA [Concomitant]
     Dosage: 5 - 10 MG DAILY
     Route: 048
     Dates: start: 19981123
  12. CLARINEX [Concomitant]
     Route: 048
     Dates: start: 20020830
  13. AMANTADINE HCL [Concomitant]
     Route: 048
     Dates: start: 20030617
  14. RISPERDAL [Concomitant]
     Route: 048
     Dates: start: 20010714
  15. ZOLOFT [Concomitant]
     Route: 048
     Dates: start: 20010714
  16. TRAZODONE [Concomitant]
     Dosage: 20 - 25 MG DAILY
     Route: 048
     Dates: start: 20040220
  17. CARISOPRODOL AND ASPIRIN [Concomitant]
     Dosage: CARISOPRODOL (200 MG) / ASPIRIN (325 MG) AS REQUIRED
     Dates: start: 19981123
  18. MIRTAZAPINE [Concomitant]
     Route: 048
     Dates: start: 19981123
  19. TRIAMTERENE AND HYDROCHLOROTHIAZIDE [Concomitant]
     Dosage: TRIAMTERENE (37.5 MG) / HYDROCHLOROTHIAZIDE (25 MG) DAILY
     Dates: start: 19981123

REACTIONS (5)
  - DIABETES MELLITUS [None]
  - DIABETIC COMA [None]
  - DIABETIC KETOACIDOSIS [None]
  - HYPERGLYCAEMIA [None]
  - TYPE 2 DIABETES MELLITUS [None]
